FAERS Safety Report 10121145 (Version 1)
Quarter: 2014Q2

REPORT INFORMATION
  Report Type: Report from Study
  Country: BR (occurrence: BR)
  Receive Date: 20140425
  Receipt Date: 20140425
  Transmission Date: 20141212
  Serious: Yes (Other)
  Sender: FDA-Public Use
  Company Number: PHHY2014BR049781

PATIENT
  Sex: Female
  Weight: 44 kg

DRUGS (1)
  1. EXELON [Suspect]
     Indication: CONFUSIONAL STATE
     Dosage: UNK UKN, UNK
     Dates: start: 201404

REACTIONS (2)
  - Gastric disorder [Recovered/Resolved]
  - Vomiting [Recovered/Resolved]
